FAERS Safety Report 11194919 (Version 2)
Quarter: 2015Q3

REPORT INFORMATION
  Report Type: Spontaneous
  Country: US (occurrence: US)
  Receive Date: 20150617
  Receipt Date: 20150716
  Transmission Date: 20151125
  Serious: No
  Sender: FDA-Public Use
  Company Number: US-ASTRAZENECA-2015SE56008

PATIENT
  Age: 743 Month
  Sex: Male
  Weight: 71.2 kg

DRUGS (4)
  1. ALBUTEROL. [Suspect]
     Active Substance: ALBUTEROL
     Indication: INHALATION THERAPY
     Route: 055
  2. PREDNISONE. [Concomitant]
     Active Substance: PREDNISONE
     Indication: SARCOIDOSIS
     Route: 048
  3. SYMBICORT [Suspect]
     Active Substance: BUDESONIDE\FORMOTEROL FUMARATE DIHYDRATE
     Indication: CHRONIC OBSTRUCTIVE PULMONARY DISEASE
     Dosage: 160/4.5 MCG, 120 INHALATIONS, ONE PUFF TWO TIMES A DAY
     Route: 055
     Dates: start: 201503
  4. ALBUTEROL. [Suspect]
     Active Substance: ALBUTEROL
     Indication: INHALATION THERAPY
     Dosage: NEBULIZER; 2.5 MG; AS REQUIRED
     Route: 055

REACTIONS (4)
  - Product quality issue [Unknown]
  - Nervousness [Unknown]
  - Intentional product misuse [Unknown]
  - Anxiety [Unknown]

NARRATIVE: CASE EVENT DATE: 201504
